FAERS Safety Report 18726920 (Version 1)
Quarter: 2021Q1

REPORT INFORMATION
  Report Type: Spontaneous
  Country: US (occurrence: US)
  Receive Date: 20210112
  Receipt Date: 20210112
  Transmission Date: 20210419
  Serious: No
  Sender: FDA-Public Use
  Company Number: US-ASTRAZENECA-2021A004196

PATIENT
  Age: 64 Year
  Sex: Female

DRUGS (1)
  1. PRILOSEC OTC [Suspect]
     Active Substance: OMEPRAZOLE MAGNESIUM
     Dosage: 1?2 PILLS (TABLET), EVERY DAY
     Route: 048

REACTIONS (2)
  - Product storage error [Unknown]
  - Cough [Recovered/Resolved]
